FAERS Safety Report 7789264-4 (Version None)
Quarter: 2011Q3

REPORT INFORMATION
  Report Type: 
  Country: None (occurrence: None)
  Receive Date: 20110930
  Receipt Date: 20110916
  Transmission Date: 20111222
  Serious: Yes (Other)
  Sender: FDA-Public Use
  Company Number: US-UCBSA-039229

PATIENT
  Sex: Male

DRUGS (6)
  1. METOPROLOL [Concomitant]
  2. VIMPAT [Suspect]
     Indication: CONVULSION
     Route: 048
     Dates: start: 20110601, end: 20110727
  3. VIMPAT [Suspect]
     Indication: EPILEPSY
     Route: 048
     Dates: start: 20110601, end: 20110727
  4. TEGRETOL [Suspect]
     Indication: CONVULSION
     Route: 048
  5. FUROSEMIDE [Concomitant]
  6. ZONISAMIDE [Concomitant]

REACTIONS (4)
  - STEVENS-JOHNSON SYNDROME [None]
  - HEADACHE [None]
  - DYSARTHRIA [None]
  - HYPOKINESIA [None]
